FAERS Safety Report 18585514 (Version 1)
Quarter: 2020Q4

REPORT INFORMATION
  Report Type: Spontaneous
  Country: GB (occurrence: GB)
  Receive Date: 20201207
  Receipt Date: 20201207
  Transmission Date: 20210114
  Serious: Yes (Other)
  Sender: FDA-Public Use
  Company Number: GB-PFIZER INC-2020474383

PATIENT
  Age: 51 Year
  Sex: Male
  Weight: 96 kg

DRUGS (9)
  1. AMLODIPINE BESILATE [Suspect]
     Active Substance: AMLODIPINE BESYLATE
     Dosage: 10 MG, 1X/DAY
     Dates: start: 20200611
  2. ROSUVASTATIN. [Concomitant]
     Active Substance: ROSUVASTATIN
     Dosage: 1 DF, 1X/DAY
     Dates: start: 20200702
  3. PROCTOSEDYL [CINCHOCAINE HYDROCHLORIDE;ESCULOSIDE;HYDROCORTISONE;NEOMY [Concomitant]
     Dosage: FREQ:{ASNECESSARY};INSERT
     Dates: start: 20200826, end: 20200830
  4. MEBEVERINE HYDROCHLORIDE [Concomitant]
     Active Substance: MEBEVERINE HYDROCHLORIDE
     Dosage: 3 DF, 1X/DAY
     Dates: start: 20201027
  5. LOSARTAN. [Concomitant]
     Active Substance: LOSARTAN
     Dosage: 1 DF, 1X/DAY
     Dates: start: 20191220
  6. FELODIPINE. [Concomitant]
     Active Substance: FELODIPINE
     Dosage: 1 DF, 1X/DAY
     Dates: start: 20201111
  7. SALBUTAMOL [Concomitant]
     Active Substance: ALBUTEROL
     Dosage: 2 DF, AS NEEDED (FREQUENTLY (AS NECESSARY))
     Route: 055
     Dates: start: 20180202
  8. CLENIL MODULITE [Concomitant]
     Active Substance: BECLOMETHASONE DIPROPIONATE
     Dosage: 4 DF, 1X/DAY
     Route: 055
     Dates: start: 20191231
  9. ACETYLSALICYLIC ACID [Concomitant]
     Active Substance: ASPIRIN
     Dosage: 1 DF, 1X/DAY
     Dates: start: 20200701

REACTIONS (2)
  - Gingival pain [Not Recovered/Not Resolved]
  - Periodontal disease [Unknown]

NARRATIVE: CASE EVENT DATE: 20201111
